FAERS Safety Report 4644709-3 (Version None)
Quarter: 2005Q2

REPORT INFORMATION
  Report Type: 
  Country: None (occurrence: None)
  Receive Date: 20050426
  Receipt Date: 20050414
  Transmission Date: 20051028
  Serious: Yes (Other)
  Sender: FDA-Public Use
  Company Number: US-JNJFOC-20050403330

PATIENT
  Age: 46 Year
  Sex: Male

DRUGS (1)
  1. CONCERTA [Suspect]
     Route: 049

REACTIONS (1)
  - RECTAL CANCER [None]
